FAERS Safety Report 25763455 (Version 2)
Quarter: 2025Q3

REPORT INFORMATION
  Report Type: Spontaneous
  Country: JP (occurrence: JP)
  Receive Date: 20250905
  Receipt Date: 20250919
  Transmission Date: 20251020
  Serious: Yes (Other)
  Sender: TAKEDA
  Company Number: JP-TAKEDA-2025TJP008905

PATIENT
  Age: 53 Year
  Sex: Female
  Weight: 36.7 kg

DRUGS (9)
  1. FRUZAQLA [Suspect]
     Active Substance: FRUQUINTINIB
     Indication: Colon cancer
     Dosage: 5 MILLIGRAM, QD
     Dates: start: 20250729, end: 20250814
  2. FENTANYL [Concomitant]
     Active Substance: FENTANYL
     Dates: start: 20250624, end: 20250814
  3. FUROSEMIDE [Concomitant]
     Active Substance: FUROSEMIDE
     Dates: start: 20250729, end: 20250814
  4. ELOBIXIBAT [Concomitant]
     Active Substance: ELOBIXIBAT
     Dates: start: 20250624, end: 20250814
  5. LANSOPRAZOLE [Concomitant]
     Active Substance: LANSOPRAZOLE
     Dates: start: 20240731, end: 20250814
  6. CALONAL [Concomitant]
     Active Substance: ACETAMINOPHEN
     Dates: start: 20250217, end: 20250814
  7. MIYA-BM [Concomitant]
     Active Substance: CLOSTRIDIUM BUTYRICUM SPORES STRAIN M-55
     Dates: start: 20240915, end: 20250814
  8. MAGNESIUM OXIDE [Concomitant]
     Active Substance: MAGNESIUM OXIDE
     Dates: start: 20240925, end: 20250814
  9. OXINORM [Concomitant]
     Dates: start: 20250428, end: 20250814

REACTIONS (5)
  - Fluid retention [Unknown]
  - Cerebral haemorrhage [Recovering/Resolving]
  - Blood pressure increased [Unknown]
  - Constipation [Unknown]
  - Abdominal pain [Unknown]

NARRATIVE: CASE EVENT DATE: 20250814
